FAERS Safety Report 24726579 (Version 1)
Quarter: 2024Q4

REPORT INFORMATION
  Report Type: Spontaneous
  Country: US (occurrence: US)
  Receive Date: 20241212
  Receipt Date: 20241212
  Transmission Date: 20250115
  Serious: No
  Sender: MERCK
  Company Number: US-009507513-2411USA010231

PATIENT
  Age: 64 Year
  Sex: Male

DRUGS (10)
  1. PREVYMIS [Suspect]
     Active Substance: LETERMOVIR
     Indication: Cytomegalovirus infection reactivation
     Dosage: 480 MILLIGRAM
     Route: 048
     Dates: start: 20211005, end: 20220415
  2. PREVYMIS [Suspect]
     Active Substance: LETERMOVIR
     Dosage: 480 MILLIGRAM, QD
     Route: 048
     Dates: start: 20220614, end: 20220819
  3. PREVYMIS [Suspect]
     Active Substance: LETERMOVIR
     Dosage: 480 MILLIGRAM
     Route: 048
     Dates: start: 20220819, end: 20220829
  4. VALGANCICLOVIR [Concomitant]
     Active Substance: VALGANCICLOVIR
     Indication: Cytomegalovirus infection reactivation
     Dosage: 450 MILLIGRAM, BID
     Dates: start: 202108, end: 202111
  5. VALGANCICLOVIR [Concomitant]
     Active Substance: VALGANCICLOVIR
     Dosage: 900 MILLIGRAM, BID
     Dates: start: 20210824, end: 20211005
  6. VALGANCICLOVIR [Concomitant]
     Active Substance: VALGANCICLOVIR
     Dosage: 900 MILLIGRAM, BID
     Dates: start: 20220503, end: 20220519
  7. GANCICLOVIR [Concomitant]
     Active Substance: GANCICLOVIR
     Indication: Cytomegalovirus infection reactivation
     Dosage: UNK
     Dates: start: 20210824, end: 2021
  8. FOSCARNET [Concomitant]
     Active Substance: FOSCARNET
     Indication: Cytomegalovirus infection reactivation
     Dosage: UNK
     Dates: start: 202108, end: 202111
  9. FOSCARNET [Concomitant]
     Active Substance: FOSCARNET
     Dosage: UNK
     Dates: start: 20220402, end: 20220503
  10. FOSCARNET [Concomitant]
     Active Substance: FOSCARNET
     Dosage: UNK
     Dates: start: 20220518, end: 20220614

REACTIONS (1)
  - Off label use [Unknown]

NARRATIVE: CASE EVENT DATE: 20211005
